FAERS Safety Report 16395363 (Version 1)
Quarter: 2019Q2

REPORT INFORMATION
  Report Type: Spontaneous
  Country: AT (occurrence: AT)
  Receive Date: 20190605
  Receipt Date: 20190605
  Transmission Date: 20190711
  Serious: Yes (Hospitalization, Other)
  Sender: FDA-Public Use
  Company Number: AT-DSJP-DSE-2019-119514

PATIENT

DRUGS (1)
  1. LIXIANA [Suspect]
     Active Substance: EDOXABAN TOSYLATE
     Indication: ATRIAL FIBRILLATION
     Dosage: 60 MG
     Route: 048

REACTIONS (2)
  - Basal ganglia haemorrhage [Unknown]
  - Hypertension [Unknown]

NARRATIVE: CASE EVENT DATE: 20190517
